FAERS Safety Report 26116621 (Version 1)
Quarter: 2025Q4

REPORT INFORMATION
  Report Type: Spontaneous
  Country: JP (occurrence: JP)
  Receive Date: 20251203
  Receipt Date: 20251203
  Transmission Date: 20260118
  Serious: Yes (Hospitalization)
  Sender: MYLAN
  Company Number: JP-MYLANLABS-2025M1102759

PATIENT
  Age: 16 Year
  Sex: Male

DRUGS (96)
  1. MYCOPHENOLATE MOFETIL [Suspect]
     Active Substance: MYCOPHENOLATE MOFETIL
     Indication: Prophylaxis against graft versus host disease
     Dosage: UNK
  2. MYCOPHENOLATE MOFETIL [Suspect]
     Active Substance: MYCOPHENOLATE MOFETIL
     Dosage: UNK
  3. MYCOPHENOLATE MOFETIL [Suspect]
     Active Substance: MYCOPHENOLATE MOFETIL
     Dosage: UNK
     Route: 065
  4. MYCOPHENOLATE MOFETIL [Suspect]
     Active Substance: MYCOPHENOLATE MOFETIL
     Dosage: UNK
     Route: 065
  5. MYCOPHENOLATE MOFETIL [Suspect]
     Active Substance: MYCOPHENOLATE MOFETIL
     Dosage: 2000 MILLIGRAM, QD
  6. MYCOPHENOLATE MOFETIL [Suspect]
     Active Substance: MYCOPHENOLATE MOFETIL
     Dosage: 2000 MILLIGRAM, QD
  7. MYCOPHENOLATE MOFETIL [Suspect]
     Active Substance: MYCOPHENOLATE MOFETIL
     Dosage: 2000 MILLIGRAM, QD
     Route: 065
  8. MYCOPHENOLATE MOFETIL [Suspect]
     Active Substance: MYCOPHENOLATE MOFETIL
     Dosage: 2000 MILLIGRAM, QD
     Route: 065
  9. TACROLIMUS [Suspect]
     Active Substance: TACROLIMUS
     Indication: Prophylaxis against graft versus host disease
     Dosage: UNK
  10. TACROLIMUS [Suspect]
     Active Substance: TACROLIMUS
     Dosage: UNK
  11. TACROLIMUS [Suspect]
     Active Substance: TACROLIMUS
     Dosage: UNK
     Route: 065
  12. TACROLIMUS [Suspect]
     Active Substance: TACROLIMUS
     Dosage: UNK
     Route: 065
  13. TACROLIMUS [Suspect]
     Active Substance: TACROLIMUS
     Dosage: 5 NG/ML, DAYS-1 TO 5
  14. TACROLIMUS [Suspect]
     Active Substance: TACROLIMUS
     Dosage: 5 NG/ML, DAYS-1 TO 5
  15. TACROLIMUS [Suspect]
     Active Substance: TACROLIMUS
     Dosage: 5 NG/ML, DAYS-1 TO 5
     Route: 065
  16. TACROLIMUS [Suspect]
     Active Substance: TACROLIMUS
     Dosage: 5 NG/ML, DAYS-1 TO 5
     Route: 065
  17. TACROLIMUS [Suspect]
     Active Substance: TACROLIMUS
     Dosage: 10-15 NG/ML FROM DAY 6
  18. TACROLIMUS [Suspect]
     Active Substance: TACROLIMUS
     Dosage: 10-15 NG/ML FROM DAY 6
     Route: 065
  19. TACROLIMUS [Suspect]
     Active Substance: TACROLIMUS
     Dosage: 10-15 NG/ML FROM DAY 6
  20. TACROLIMUS [Suspect]
     Active Substance: TACROLIMUS
     Dosage: 10-15 NG/ML FROM DAY 6
     Route: 065
  21. DASATINIB [Suspect]
     Active Substance: DASATINIB
     Indication: Chronic myeloid leukaemia
  22. DASATINIB [Suspect]
     Active Substance: DASATINIB
     Route: 065
  23. DASATINIB [Suspect]
     Active Substance: DASATINIB
     Route: 065
  24. DASATINIB [Suspect]
     Active Substance: DASATINIB
  25. PONATINIB [Suspect]
     Active Substance: PONATINIB
     Indication: Chronic myeloid leukaemia
  26. PONATINIB [Suspect]
     Active Substance: PONATINIB
     Route: 065
  27. PONATINIB [Suspect]
     Active Substance: PONATINIB
     Route: 065
  28. PONATINIB [Suspect]
     Active Substance: PONATINIB
  29. FLUDARABINE [Suspect]
     Active Substance: FLUDARABINE PHOSPHATE
     Indication: Prophylaxis
  30. FLUDARABINE [Suspect]
     Active Substance: FLUDARABINE PHOSPHATE
     Indication: Transplant failure
  31. FLUDARABINE [Suspect]
     Active Substance: FLUDARABINE PHOSPHATE
     Route: 065
  32. FLUDARABINE [Suspect]
     Active Substance: FLUDARABINE PHOSPHATE
     Route: 065
  33. FLUDARABINE [Suspect]
     Active Substance: FLUDARABINE PHOSPHATE
     Dosage: 180 MILLIGRAM/SQ. METER
  34. FLUDARABINE [Suspect]
     Active Substance: FLUDARABINE PHOSPHATE
     Dosage: 180 MILLIGRAM/SQ. METER
  35. FLUDARABINE [Suspect]
     Active Substance: FLUDARABINE PHOSPHATE
     Dosage: 180 MILLIGRAM/SQ. METER
     Route: 065
  36. FLUDARABINE [Suspect]
     Active Substance: FLUDARABINE PHOSPHATE
     Dosage: 180 MILLIGRAM/SQ. METER
     Route: 065
  37. FLUDARABINE [Suspect]
     Active Substance: FLUDARABINE PHOSPHATE
     Dosage: 90 MILLIGRAM/SQ. METER
  38. FLUDARABINE [Suspect]
     Active Substance: FLUDARABINE PHOSPHATE
     Dosage: 90 MILLIGRAM/SQ. METER
     Route: 065
  39. FLUDARABINE [Suspect]
     Active Substance: FLUDARABINE PHOSPHATE
     Dosage: 90 MILLIGRAM/SQ. METER
  40. FLUDARABINE [Suspect]
     Active Substance: FLUDARABINE PHOSPHATE
     Dosage: 90 MILLIGRAM/SQ. METER
     Route: 065
  41. BUSULFAN [Suspect]
     Active Substance: BUSULFAN
     Indication: Prophylaxis
  42. BUSULFAN [Suspect]
     Active Substance: BUSULFAN
     Indication: Transplant failure
     Route: 065
  43. BUSULFAN [Suspect]
     Active Substance: BUSULFAN
     Route: 065
  44. BUSULFAN [Suspect]
     Active Substance: BUSULFAN
  45. MELPHALAN [Suspect]
     Active Substance: MELPHALAN
     Indication: Prophylaxis
  46. MELPHALAN [Suspect]
     Active Substance: MELPHALAN
     Indication: Transplant failure
  47. MELPHALAN [Suspect]
     Active Substance: MELPHALAN
     Route: 065
  48. MELPHALAN [Suspect]
     Active Substance: MELPHALAN
     Route: 065
  49. MELPHALAN [Suspect]
     Active Substance: MELPHALAN
     Dosage: 40 MILLIGRAM/SQ. METER
  50. MELPHALAN [Suspect]
     Active Substance: MELPHALAN
     Dosage: 40 MILLIGRAM/SQ. METER
  51. MELPHALAN [Suspect]
     Active Substance: MELPHALAN
     Dosage: 40 MILLIGRAM/SQ. METER
     Route: 065
  52. MELPHALAN [Suspect]
     Active Substance: MELPHALAN
     Dosage: 40 MILLIGRAM/SQ. METER
     Route: 065
  53. FOSAPREPITANT [Suspect]
     Active Substance: FOSAPREPITANT
     Indication: Prophylaxis of nausea and vomiting
  54. FOSAPREPITANT [Suspect]
     Active Substance: FOSAPREPITANT
     Route: 065
  55. FOSAPREPITANT [Suspect]
     Active Substance: FOSAPREPITANT
     Route: 065
  56. FOSAPREPITANT [Suspect]
     Active Substance: FOSAPREPITANT
  57. GRANISETRON [Suspect]
     Active Substance: GRANISETRON
     Indication: Prophylaxis of nausea and vomiting
  58. GRANISETRON [Suspect]
     Active Substance: GRANISETRON
     Route: 065
  59. GRANISETRON [Suspect]
     Active Substance: GRANISETRON
     Route: 065
  60. GRANISETRON [Suspect]
     Active Substance: GRANISETRON
  61. DEXAMETHASONE [Suspect]
     Active Substance: DEXAMETHASONE
     Indication: Prophylaxis of nausea and vomiting
     Dosage: LOW DOSE
  62. DEXAMETHASONE [Suspect]
     Active Substance: DEXAMETHASONE
     Dosage: LOW DOSE
  63. DEXAMETHASONE [Suspect]
     Active Substance: DEXAMETHASONE
     Dosage: LOW DOSE
     Route: 065
  64. DEXAMETHASONE [Suspect]
     Active Substance: DEXAMETHASONE
     Dosage: LOW DOSE
     Route: 065
  65. DEXAMETHASONE [Suspect]
     Active Substance: DEXAMETHASONE
     Dosage: LOW DOSE
  66. DEXAMETHASONE [Suspect]
     Active Substance: DEXAMETHASONE
     Dosage: LOW DOSE
  67. DEXAMETHASONE [Suspect]
     Active Substance: DEXAMETHASONE
     Dosage: LOW DOSE
     Route: 065
  68. DEXAMETHASONE [Suspect]
     Active Substance: DEXAMETHASONE
     Dosage: LOW DOSE
     Route: 065
  69. HYDROCORTISONE [Suspect]
     Active Substance: HYDROCORTISONE
     Indication: Pre-engraftment immune reaction
  70. HYDROCORTISONE [Suspect]
     Active Substance: HYDROCORTISONE
     Route: 042
  71. HYDROCORTISONE [Suspect]
     Active Substance: HYDROCORTISONE
     Route: 042
  72. HYDROCORTISONE [Suspect]
     Active Substance: HYDROCORTISONE
  73. CYCLOPHOSPHAMIDE [Suspect]
     Active Substance: CYCLOPHOSPHAMIDE
     Indication: Prophylaxis
     Dosage: 2 G/M2
  74. CYCLOPHOSPHAMIDE [Suspect]
     Active Substance: CYCLOPHOSPHAMIDE
     Indication: Transplant failure
     Dosage: 2 G/M2
  75. CYCLOPHOSPHAMIDE [Suspect]
     Active Substance: CYCLOPHOSPHAMIDE
     Dosage: 2 G/M2
     Route: 065
  76. CYCLOPHOSPHAMIDE [Suspect]
     Active Substance: CYCLOPHOSPHAMIDE
     Dosage: 2 G/M2
     Route: 065
  77. CYCLOPHOSPHAMIDE [Suspect]
     Active Substance: CYCLOPHOSPHAMIDE
     Dosage: 40 MILLIGRAM/KILOGRAM, QD
  78. CYCLOPHOSPHAMIDE [Suspect]
     Active Substance: CYCLOPHOSPHAMIDE
     Dosage: 40 MILLIGRAM/KILOGRAM, QD
  79. CYCLOPHOSPHAMIDE [Suspect]
     Active Substance: CYCLOPHOSPHAMIDE
     Dosage: 40 MILLIGRAM/KILOGRAM, QD
     Route: 065
  80. CYCLOPHOSPHAMIDE [Suspect]
     Active Substance: CYCLOPHOSPHAMIDE
     Dosage: 40 MILLIGRAM/KILOGRAM, QD
     Route: 065
  81. METOCLOPRAMIDE [Suspect]
     Active Substance: METOCLOPRAMIDE
     Indication: Prophylaxis of nausea and vomiting
  82. METOCLOPRAMIDE [Suspect]
     Active Substance: METOCLOPRAMIDE
     Route: 065
  83. METOCLOPRAMIDE [Suspect]
     Active Substance: METOCLOPRAMIDE
     Route: 065
  84. METOCLOPRAMIDE [Suspect]
     Active Substance: METOCLOPRAMIDE
  85. LORAZEPAM [Suspect]
     Active Substance: LORAZEPAM
     Indication: Prophylaxis of nausea and vomiting
  86. LORAZEPAM [Suspect]
     Active Substance: LORAZEPAM
     Route: 065
  87. LORAZEPAM [Suspect]
     Active Substance: LORAZEPAM
     Route: 065
  88. LORAZEPAM [Suspect]
     Active Substance: LORAZEPAM
  89. VANCOMYCIN [Concomitant]
     Active Substance: VANCOMYCIN
     Indication: Staphylococcal infection
  90. VANCOMYCIN [Concomitant]
     Active Substance: VANCOMYCIN
     Indication: Sepsis
     Route: 042
  91. VANCOMYCIN [Concomitant]
     Active Substance: VANCOMYCIN
     Route: 042
  92. VANCOMYCIN [Concomitant]
     Active Substance: VANCOMYCIN
  93. ETOPOSIDE [Concomitant]
     Active Substance: ETOPOSIDE
     Indication: Haemophagocytic lymphohistiocytosis
     Dosage: 100 MG/BODY
  94. ETOPOSIDE [Concomitant]
     Active Substance: ETOPOSIDE
     Dosage: 100 MG/BODY
     Route: 042
  95. ETOPOSIDE [Concomitant]
     Active Substance: ETOPOSIDE
     Dosage: 100 MG/BODY
     Route: 042
  96. ETOPOSIDE [Concomitant]
     Active Substance: ETOPOSIDE
     Dosage: 100 MG/BODY

REACTIONS (3)
  - Pre-engraftment immune reaction [Unknown]
  - Treatment noncompliance [Unknown]
  - Drug ineffective [Unknown]
